FAERS Safety Report 20784019 (Version 1)
Quarter: 2022Q2

REPORT INFORMATION
  Report Type: Spontaneous
  Country: FR (occurrence: FR)
  Receive Date: 20220504
  Receipt Date: 20220504
  Transmission Date: 20220721
  Serious: Yes (Hospitalization)
  Sender: FDA-Public Use
  Company Number: None

PATIENT
  Age: 64 Year
  Sex: Male
  Weight: 92 kg

DRUGS (2)
  1. KETOPROFEN [Interacting]
     Active Substance: KETOPROFEN
     Indication: Arthralgia
     Dosage: UNK (NOT SPECIFIED)
     Route: 048
     Dates: start: 202202, end: 202202
  2. TERALITHE [Interacting]
     Active Substance: LITHIUM CARBONATE
     Indication: Mental disorder
     Dosage: 800 MILLIGRAM
     Route: 048
     Dates: end: 20220218

REACTIONS (3)
  - Electrocardiogram T wave amplitude decreased [Unknown]
  - Dysarthria [Recovered/Resolved]
  - Drug interaction [Unknown]

NARRATIVE: CASE EVENT DATE: 20220201
